FAERS Safety Report 6982089-9 (Version None)
Quarter: 2010Q3

REPORT INFORMATION
  Report Type: 
  Country: None (occurrence: None)
  Receive Date: 20100909
  Receipt Date: 20100810
  Transmission Date: 20110219
  Serious: Yes (Hospitalization)
  Sender: FDA-Public Use
  Company Number: TPG2010A00090

PATIENT
  Age: 63 Year
  Sex: Female

DRUGS (7)
  1. METFORMIN HCL [Suspect]
     Indication: DIABETES MELLITUS
     Dosage: (2 IN 1 D) PER ORAL
     Route: 048
     Dates: start: 20091217
  2. OLMESARTAN MEDOXOMIL [Concomitant]
  3. RAMIPRIL [Concomitant]
  4. LANTUS [Concomitant]
  5. VOTUM PLUS (OLMESARTAN MEDOXOMIL) [Concomitant]
  6. VOTUM PLUS (HYDROCHLOROTHIAZIDE) [Concomitant]
  7. SIMVASTATIN [Concomitant]

REACTIONS (9)
  - BLOOD GLUCOSE DECREASED [None]
  - BLOOD PRESSURE INCREASED [None]
  - CONDITION AGGRAVATED [None]
  - DIZZINESS [None]
  - DYSLIPIDAEMIA [None]
  - MICROANGIOPATHY [None]
  - NORMOCHROMIC NORMOCYTIC ANAEMIA [None]
  - POLYNEUROPATHY [None]
  - TINNITUS [None]
